FAERS Safety Report 11843461 (Version 10)
Quarter: 2021Q4

REPORT INFORMATION
  Report Type: Other
  Country: CA (occurrence: None)
  Receive Date: 20151217
  Receipt Date: 20211110
  Transmission Date: 20220303
  Serious: Yes (Other)
  Sender: FDA-Public Use
  Company Number: CA-ROCHE-1487796

PATIENT
  Age: 81 Year
  Sex: Female
  Weight: 68 kg

DRUGS (17)
  1. RITUXAN [Suspect]
     Active Substance: RITUXIMAB
     Indication: Ocular pemphigoid
     Dosage: DATE OF MOST RECENT DOSE OF RITUXIMAB INFUSION: 30/APR/2014?DATE OF MOST RECENT DOSE OF RITUXIMAB IN
     Route: 042
     Dates: start: 20140416, end: 202111
  2. PREDNISONE [Suspect]
     Active Substance: PREDNISONE
     Indication: Pemphigoid
     Route: 048
  3. CYCLOPHOSPHAMIDE [Suspect]
     Active Substance: CYCLOPHOSPHAMIDE
     Indication: Product used for unknown indication
     Route: 065
  4. ACETAMINOPHEN [Concomitant]
     Active Substance: ACETAMINOPHEN
     Indication: Premedication
     Route: 048
     Dates: start: 20140416
  5. METHYLPREDNISOLONE [Concomitant]
     Active Substance: METHYLPREDNISOLONE
     Indication: Premedication
     Route: 042
     Dates: start: 20140416
  6. RESTASIS [Concomitant]
     Active Substance: CYCLOSPORINE
  7. IVIGLOB EX [Concomitant]
     Active Substance: HUMAN IMMUNOGLOBULIN G
  8. MYFORTIC [Concomitant]
     Active Substance: MYCOPHENOLATE SODIUM
     Indication: Pemphigoid
     Dosage: SWITCHED TO CELLCEPT
     Dates: end: 20141120
  9. DOXYCYCLINE [Concomitant]
     Active Substance: DOXYCYCLINE
  10. PANTOPRAZOLE SODIUM [Concomitant]
     Active Substance: PANTOPRAZOLE SODIUM
  11. DIPHENHYDRAMINE [Concomitant]
     Active Substance: DIPHENHYDRAMINE
     Indication: Premedication
     Route: 048
     Dates: start: 20140416
  12. METOPROLOL [Concomitant]
     Active Substance: METOPROLOL
  13. TOBRADEX [Concomitant]
     Active Substance: DEXAMETHASONE\TOBRAMYCIN
     Indication: Eye inflammation
     Dates: start: 20180801
  14. ZANTAC [Concomitant]
     Active Substance: RANITIDINE HYDROCHLORIDE
     Indication: Premedication
     Route: 048
     Dates: start: 20140416, end: 20140416
  15. SYSTANE (HYPROMELLOSE 2910 (4000 MPA.S)) [Concomitant]
     Active Substance: HYPROMELLOSE 2910 (4000 MPA.S)
  16. CELLCEPT [Concomitant]
     Active Substance: MYCOPHENOLATE MOFETIL\MYCOPHENOLATE MOFETIL HYDROCHLORIDE
     Indication: Pemphigoid
     Dosage: 1 PILL A DAY
  17. LACTULOSE [Concomitant]
     Active Substance: LACTULOSE

REACTIONS (19)
  - Depression [Recovering/Resolving]
  - Visual acuity reduced [Not Recovered/Not Resolved]
  - Pemphigoid [Not Recovered/Not Resolved]
  - Conjunctival scar [Unknown]
  - Cataract [Not Recovered/Not Resolved]
  - Glaucoma [Recovering/Resolving]
  - Weight increased [Not Recovered/Not Resolved]
  - White blood cell count decreased [Unknown]
  - Rhinalgia [Unknown]
  - Eye pain [Not Recovered/Not Resolved]
  - Pain [Recovering/Resolving]
  - Stress [Unknown]
  - Eye inflammation [Unknown]
  - Off label use [Unknown]
  - Hypertension [Not Recovered/Not Resolved]
  - Intraocular pressure increased [Unknown]
  - Colour blindness [Unknown]
  - Blindness unilateral [Unknown]
  - Optic nerve disorder [Unknown]

NARRATIVE: CASE EVENT DATE: 20180401
